FAERS Safety Report 16807859 (Version 1)
Quarter: 2019Q3

REPORT INFORMATION
  Report Type: Spontaneous
  Country: PL (occurrence: PL)
  Receive Date: 20190915
  Receipt Date: 20190915
  Transmission Date: 20191005
  Serious: Yes (Death, Other)
  Sender: FDA-Public Use
  Company Number: PHHY2019PL213319

PATIENT
  Age: 48 Year
  Sex: Male

DRUGS (2)
  1. MIDOSTAURIN [Suspect]
     Active Substance: MIDOSTAURIN
     Indication: SYSTEMIC MASTOCYTOSIS
     Dosage: 100 MG, UNK (2X1)
     Route: 065
  2. DISODIUM PAMIDRONATE [Suspect]
     Active Substance: PAMIDRONATE DISODIUM
     Indication: PRODUCT USED FOR UNKNOWN INDICATION
     Dosage: 90 MG, UNK (EVERY 4-5 WEEKS ~ 5 MONTHS OF THERAPY)
     Route: 042

REACTIONS (5)
  - Diarrhoea [Unknown]
  - Vomiting [Unknown]
  - Transformation to acute myeloid leukaemia [None]
  - Death [Fatal]
  - Nausea [Unknown]
